FAERS Safety Report 18326516 (Version 1)
Quarter: 2020Q3

REPORT INFORMATION
  Report Type: Spontaneous
  Country: TR (occurrence: TR)
  Receive Date: 20200929
  Receipt Date: 20200929
  Transmission Date: 20201103
  Serious: Yes (Other)
  Sender: FDA-Public Use
  Company Number: TR-BAYER-2020-204899

PATIENT
  Age: 53 Year
  Sex: Male

DRUGS (2)
  1. SORAFENIB (RAF KINASE INHIBITOR) [Suspect]
     Active Substance: SORAFENIB
     Indication: HEPATOCELLULAR CARCINOMA
     Dosage: 400 MG, BID
     Dates: start: 201903, end: 201905
  2. REGORAFENIB. [Suspect]
     Active Substance: REGORAFENIB
     Dosage: DAILY DOSE 160 MG
     Dates: start: 201905, end: 202009

REACTIONS (3)
  - Lymphatic system neoplasm [None]
  - Palmar-plantar erythrodysaesthesia syndrome [None]
  - Hepatic cancer [None]
